FAERS Safety Report 8394863-5 (Version None)
Quarter: 2012Q2

REPORT INFORMATION
  Report Type: 
  Country: None (occurrence: None)
  Receive Date: 20120530
  Receipt Date: 20120516
  Transmission Date: 20120825
  Serious: Yes (Hospitalization)
  Sender: FDA-Public Use
  Company Number: JP-ELI_LILLY_AND_COMPANY-JP201205007235

PATIENT
  Sex: Male
  Weight: 69 kg

DRUGS (17)
  1. MEILAX [Concomitant]
     Indication: MAJOR DEPRESSION
     Dosage: UNK
     Route: 048
     Dates: start: 20110414, end: 20110427
  2. MEILAX [Concomitant]
     Dosage: UNK
     Route: 048
     Dates: start: 20110428
  3. PAXIL [Concomitant]
     Dosage: UNK
     Dates: start: 20110811
  4. DULOXETINE HYDROCHLORIDE [Suspect]
     Indication: MAJOR DEPRESSION
     Dosage: 20 MG, QD
     Route: 048
     Dates: start: 20110414, end: 20110427
  5. BISOPROLOL FUMARATE [Concomitant]
     Indication: CARDIAC VALVE DISEASE
     Dosage: UNK
     Route: 048
  6. AMIODARONE HYDROCHLORIDE [Concomitant]
     Indication: CARDIAC VALVE DISEASE
     Dosage: UNK
     Route: 048
  7. DULOXETINE HYDROCHLORIDE [Suspect]
     Dosage: 40 MG, QD
     Route: 048
     Dates: start: 20110428, end: 20110525
  8. DULOXETINE HYDROCHLORIDE [Suspect]
     Dosage: 60 MG, QD
     Route: 048
     Dates: start: 20110526
  9. LIPITOR [Concomitant]
     Indication: CARDIAC VALVE DISEASE
     Dosage: UNK
     Route: 048
     Dates: end: 20120411
  10. WARFARIN SODIUM [Concomitant]
     Indication: CARDIAC VALVE DISEASE
     Dosage: UNK
     Route: 048
  11. HIRNAMIN [Concomitant]
     Indication: INSOMNIA
     Dosage: UNK
     Route: 048
     Dates: start: 20110428, end: 20110914
  12. HIRNAMIN [Concomitant]
     Dosage: UNK
     Route: 048
     Dates: start: 20111013
  13. PAXIL [Concomitant]
     Indication: MAJOR DEPRESSION
     Dosage: UNK
     Dates: start: 20110721, end: 20110810
  14. LASIX [Concomitant]
     Indication: CARDIAC VALVE DISEASE
     Dosage: UNK
     Route: 048
  15. ASPIRIN [Concomitant]
     Indication: CARDIAC VALVE DISEASE
     Dosage: UNK
     Route: 048
  16. BEZATOL - SLOW RELEASE [Concomitant]
     Indication: CARDIAC VALVE DISEASE
     Dosage: UNK
     Route: 048
  17. HIRNAMIN [Concomitant]
     Dosage: UNK
     Route: 048
     Dates: start: 20110915, end: 20111012

REACTIONS (1)
  - VIITH NERVE PARALYSIS [None]
